FAERS Safety Report 5859310-3 (Version None)
Quarter: 2008Q3

REPORT INFORMATION
  Report Type: 
  Country: None (occurrence: None)
  Receive Date: 20080827
  Receipt Date: 20080814
  Transmission Date: 20090109
  Serious: Yes (Hospitalization)
  Sender: FDA-Public Use
  Company Number: US-ASTRAZENECA-2008UW16149

PATIENT
  Age: 84 Year
  Sex: Female

DRUGS (4)
  1. PRILOSEC [Suspect]
     Indication: GASTRIC ULCER
     Dosage: ONE TABLET ONCE A DAY
     Route: 048
     Dates: start: 20070813, end: 20080813
  2. DIGOXIN [Concomitant]
  3. LASIX [Concomitant]
  4. PAXIUM [Concomitant]

REACTIONS (5)
  - ARRHYTHMIA [None]
  - CARDIAC ARREST [None]
  - HYPERTENSION [None]
  - NAUSEA [None]
  - PALPITATIONS [None]
